FAERS Safety Report 8901250 (Version 2)
Quarter: 2012Q4

REPORT INFORMATION
  Report Type: 
  Country: US (occurrence: US)
  Receive Date: 20121109
  Receipt Date: 20121128
  Transmission Date: 20130627
  Serious: No
  Sender: FDA-Public Use
  Company Number: US-PFIZER INC-2012279179

PATIENT
  Sex: Female

DRUGS (2)
  1. PRISTIQ [Suspect]
     Dosage: UNK
  2. MINOXIDIL [Suspect]
     Dosage: UNK

REACTIONS (6)
  - Alopecia [Unknown]
  - Paraesthesia [Unknown]
  - Dizziness [Unknown]
  - Confusional state [Unknown]
  - Mood swings [Unknown]
  - Tinnitus [Unknown]
